FAERS Safety Report 21311887 (Version 1)
Quarter: 2022Q3

REPORT INFORMATION
  Report Type: Spontaneous
  Country: US (occurrence: None)
  Receive Date: 20220909
  Receipt Date: 20220909
  Transmission Date: 20221027
  Serious: No
  Sender: FDA-Public Use
  Company Number: US-ARIS GLOBAL-202203-0549

PATIENT
  Sex: Female

DRUGS (29)
  1. OXERVATE [Suspect]
     Active Substance: CENEGERMIN-BKBJ
     Indication: Neurotrophic keratopathy
     Route: 047
     Dates: start: 20220322
  2. NAPROXEN [Concomitant]
     Active Substance: NAPROXEN
  3. GABAPENTIN [Concomitant]
     Active Substance: GABAPENTIN
  4. NITROGLYCERIN [Concomitant]
     Active Substance: NITROGLYCERIN
  5. CALCIUM [Concomitant]
     Active Substance: CALCIUM
     Dosage: 500 (1250)
  6. GLUCOSAMINE [Concomitant]
     Active Substance: GLUCOSAMINE
  7. MELATONIN [Concomitant]
     Active Substance: MELATONIN
  8. ALLERGY-CONGESTION RELIEF [Concomitant]
  9. VITAMIN B12 [Concomitant]
     Active Substance: CYANOCOBALAMIN
  10. COENZYME Q10 [Concomitant]
     Active Substance: DIETARY SUPPLEMENT\UBIDECARENONE
  11. VITAMIN A [Concomitant]
     Active Substance: VITAMIN A
     Dosage: 10000 UNIT
  12. VITAMIN D3 [Concomitant]
     Active Substance: CHOLECALCIFEROL
  13. MINERALS\VITAMINS [Concomitant]
     Active Substance: MINERALS\VITAMINS
  14. ACYCLOVIR [Concomitant]
     Active Substance: ACYCLOVIR
  15. OMEPRAZOLE [Concomitant]
     Active Substance: OMEPRAZOLE
     Dosage: DELAYED RELEASE
  16. VITAMIN C [Concomitant]
     Active Substance: ASCORBIC ACID
  17. CLONAZEPAM [Concomitant]
     Active Substance: CLONAZEPAM
     Dosage: TABLET RAPIDS
  18. ESCITALOPRAM OXALATE [Concomitant]
     Active Substance: ESCITALOPRAM OXALATE
  19. LOSARTAN POTASSIUM [Concomitant]
     Active Substance: LOSARTAN POTASSIUM
  20. METHOCARBAMOL [Concomitant]
     Active Substance: METHOCARBAMOL
  21. VENTOLIN HFA [Concomitant]
     Active Substance: ALBUTEROL SULFATE
     Dosage: HYDROFLUOROALKANE AEROSOL WITH ADAPTOR
  22. REFRESH CLASSIC [Concomitant]
     Active Substance: POLYVINYL ALCOHOL\POVIDONE
  23. GENTAMICIN SULFATE [Concomitant]
     Active Substance: GENTAMICIN SULFATE
  24. CIPROFLOXACIN HYDROCHLORIDE [Concomitant]
     Active Substance: CIPROFLOXACIN HYDROCHLORIDE
     Dosage: CRYSTALS
  25. PREDNISOLONE-NEPAFENAC [Concomitant]
  26. LUMIGAN [Concomitant]
     Active Substance: BIMATOPROST
  27. ALPHAGAN P [Concomitant]
     Active Substance: BRIMONIDINE TARTRATE
  28. DORZOLAMIDE\TIMOLOL [Concomitant]
     Active Substance: DORZOLAMIDE\TIMOLOL
  29. PILOCARPINE HYDROCHLORIDE [Concomitant]
     Active Substance: PILOCARPINE HYDROCHLORIDE

REACTIONS (4)
  - Periorbital pain [Unknown]
  - Accidental overdose [Unknown]
  - Intentional product misuse [Unknown]
  - Device use issue [Unknown]
